FAERS Safety Report 9710014 (Version 2)
Quarter: 2013Q4

REPORT INFORMATION
  Report Type: Report from Study
  Country: CN (occurrence: CN)
  Receive Date: 20131126
  Receipt Date: 20131206
  Transmission Date: 20140711
  Serious: Yes (Other)
  Sender: FDA-Public Use
  Company Number: CN-ROCHE-1304236

PATIENT
  Age: 66 Year
  Sex: Male
  Weight: 55 kg

DRUGS (2)
  1. XELODA [Suspect]
     Indication: GASTRIC CANCER
     Route: 048
     Dates: start: 2011, end: 2011
  2. XELODA [Suspect]
     Route: 048
     Dates: start: 20131115

REACTIONS (6)
  - Carbohydrate antigen 19-9 increased [Unknown]
  - Metastases to lymph nodes [Unknown]
  - Diarrhoea [Recovering/Resolving]
  - Disease recurrence [Unknown]
  - Local swelling [Not Recovered/Not Resolved]
  - White blood cell count decreased [Unknown]
